FAERS Safety Report 7565348-0 (Version None)
Quarter: 2011Q2

REPORT INFORMATION
  Report Type: 
  Country: None (occurrence: None)
  Receive Date: 20110623
  Receipt Date: 20110615
  Transmission Date: 20111010
  Serious: No
  Sender: FDA-Public Use
  Company Number: US-BIOGENIDEC-2010BI010269

PATIENT
  Age: 36 Year
  Sex: Female

DRUGS (1)
  1. TYSABRI [Suspect]
     Indication: MULTIPLE SCLEROSIS
     Route: 042
     Dates: start: 20080312

REACTIONS (5)
  - FATIGUE [None]
  - NASOPHARYNGITIS [None]
  - BLOOD PRESSURE SYSTOLIC INCREASED [None]
  - INFLUENZA LIKE ILLNESS [None]
  - COGNITIVE DISORDER [None]
